FAERS Safety Report 21087423 (Version 1)
Quarter: 2022Q3

REPORT INFORMATION
  Report Type: Spontaneous
  Country: US (occurrence: US)
  Receive Date: 20220715
  Receipt Date: 20220715
  Transmission Date: 20221026
  Serious: Yes (Hospitalization)
  Sender: FDA-Public Use
  Company Number: US-CLOVIS ONCOLOGY-CLO-2022-000818

PATIENT
  Sex: Male

DRUGS (1)
  1. RUBRACA [Suspect]
     Active Substance: RUCAPARIB CAMSYLATE
     Indication: Product used for unknown indication
     Dosage: UNK
     Dates: start: 202206

REACTIONS (2)
  - Hypotension [Unknown]
  - Dehydration [Unknown]
